FAERS Safety Report 7040426-3 (Version None)
Quarter: 2010Q4

REPORT INFORMATION
  Report Type: 
  Country: None (occurrence: None)
  Receive Date: 20101012
  Receipt Date: 20101008
  Transmission Date: 20110411
  Serious: Yes (Death)
  Sender: FDA-Public Use
  Company Number: US-GILEAD-2010-0032340

PATIENT
  Age: 69 Year
  Sex: Female
  Weight: 44.492 kg

DRUGS (15)
  1. LETAIRIS [Suspect]
     Indication: PULMONARY ARTERIAL HYPERTENSION
     Route: 048
     Dates: start: 20090904
  2. METOPROLOL TARTRATE [Concomitant]
  3. DIOVAN [Concomitant]
  4. CRESTOR [Concomitant]
  5. ALBUTEROL [Concomitant]
  6. FORADIL [Concomitant]
  7. IPRATROPIUM BROMIDE AND ALBUTEROL SULFATE [Concomitant]
  8. PROAIR HFA [Concomitant]
  9. SPIRIVA [Concomitant]
  10. FLOVENT [Concomitant]
  11. ADVAIR DISKUS 100/50 [Concomitant]
  12. PREDNISONE [Concomitant]
  13. TUSSIONEX [Concomitant]
  14. ACTONEL [Concomitant]
  15. LEVOTHYROXINE [Concomitant]

REACTIONS (3)
  - PULMONARY FIBROSIS [None]
  - PULMONARY HYPERTENSION [None]
  - SCLERODERMA [None]
